FAERS Safety Report 20859814 (Version 1)
Quarter: 2022Q2

REPORT INFORMATION
  Report Type: Spontaneous
  Country: CZ (occurrence: CZ)
  Receive Date: 20220523
  Receipt Date: 20220523
  Transmission Date: 20220721
  Serious: Yes (Hospitalization)
  Sender: FDA-Public Use
  Company Number: CZ-AMGEN-CZESP2022085420

PATIENT
  Age: 42 Year
  Sex: Male
  Weight: 100 kg

DRUGS (2)
  1. OTEZLA [Suspect]
     Active Substance: APREMILAST
     Indication: Psoriasis
     Dosage: UNK
     Route: 065
  2. RISANKIZUMAB [Concomitant]
     Active Substance: RISANKIZUMAB
     Indication: Psoriasis
     Dosage: UNK
     Dates: start: 202009

REACTIONS (3)
  - Psoriasis [Unknown]
  - Therapeutic product effect incomplete [Unknown]
  - COVID-19 [Unknown]

NARRATIVE: CASE EVENT DATE: 20210401
